FAERS Safety Report 7439707-0 (Version None)
Quarter: 2011Q2

REPORT INFORMATION
  Report Type: 
  Country: None (occurrence: None)
  Receive Date: 20110427
  Receipt Date: 20110414
  Transmission Date: 20111010
  Serious: Yes (Congenital Anomaly, Other)
  Sender: FDA-Public Use
  Company Number: PHHY2011FR31826

PATIENT
  Sex: Female
  Weight: 2.56 kg

DRUGS (3)
  1. TRILEPTAL [Suspect]
     Dosage: 1800 MG DAILY
     Route: 064
  2. TRILEPTAL [Suspect]
     Indication: EPILEPSY
     Dosage: 1200 MG DAILY
     Route: 064
  3. SPECIAFOLDINE [Concomitant]
     Route: 064

REACTIONS (6)
  - GLOSSOPTOSIS [None]
  - MALAISE [None]
  - VENTRICULAR SEPTAL DEFECT [None]
  - LARYNGOMALACIA [None]
  - RESPIRATORY DISORDER NEONATAL [None]
  - DYSKINESIA NEONATAL [None]
